FAERS Safety Report 23194183 (Version 1)
Quarter: 2023Q4

REPORT INFORMATION
  Report Type: Report from Study
  Country: CA (occurrence: CA)
  Receive Date: 20231117
  Receipt Date: 20231117
  Transmission Date: 20240110
  Serious: Yes (Other)
  Sender: FDA-Public Use
  Company Number: CA-JNJFOC-20230972135

PATIENT
  Age: 15 Year
  Sex: Female
  Weight: 45 kg

DRUGS (6)
  1. REMICADE [Suspect]
     Active Substance: INFLIXIMAB
     Indication: Crohn^s disease
     Dosage: (500MG WEEK 0, 500 MG WEEK 2) AND ON 18-SEP-2023, TOOK 3RD DOSE OF 500 MG.
     Route: 042
     Dates: start: 20230909
  2. REMICADE [Suspect]
     Active Substance: INFLIXIMAB
     Dosage: NEXT DOSE WAS 300 MG SCHEDULED FOR 4 WEEKS AFTER DOSE 3. THIS WAS PATIENT^S FIRST MAINTENANCE DOSE
     Route: 042
     Dates: start: 2023
  3. REMICADE [Suspect]
     Active Substance: INFLIXIMAB
     Route: 042
     Dates: start: 2023
  4. REMICADE [Suspect]
     Active Substance: INFLIXIMAB
     Dosage: MAINTENANCE DOSE, 4TH REMICADE DOSE
     Route: 042
     Dates: start: 20231019
  5. REMICADE [Suspect]
     Active Substance: INFLIXIMAB
     Route: 042
     Dates: start: 20231114
  6. PREDNISONE [Concomitant]
     Active Substance: PREDNISONE
     Indication: Product used for unknown indication
     Route: 065

REACTIONS (4)
  - Haematochezia [Recovered/Resolved]
  - Heavy menstrual bleeding [Unknown]
  - Abdominal pain [Recovered/Resolved]
  - Off label use [Unknown]

NARRATIVE: CASE EVENT DATE: 20230101
